FAERS Safety Report 10337731 (Version 1)
Quarter: 2014Q3

REPORT INFORMATION
  Report Type: Spontaneous
  Country: US (occurrence: US)
  Receive Date: 20140724
  Receipt Date: 20140724
  Transmission Date: 20150326
  Serious: No
  Sender: FDA-Public Use
  Company Number: US-UNITED THERAPEUTICS-UTC-045392

PATIENT
  Sex: Female
  Weight: 65.77 kg

DRUGS (4)
  1. TRACLEER [Concomitant]
     Active Substance: BOSENTAN\BOSENTAN MONOHYDRATE
  2. REVATIO [Concomitant]
     Active Substance: SILDENAFIL CITRATE
  3. WARFARIN [Concomitant]
     Active Substance: WARFARIN
  4. REMODULIN [Suspect]
     Active Substance: TREPROSTINIL
     Dosage: 0.073 UG/KG/MIN
     Route: 041
     Dates: start: 20130122

REACTIONS (6)
  - Nausea [Unknown]
  - Vomiting [Unknown]
  - Headache [Unknown]
  - Photophobia [Unknown]
  - Diarrhoea [Unknown]
  - Weight decreased [Unknown]
